FAERS Safety Report 17444351 (Version 1)
Quarter: 2020Q1

REPORT INFORMATION
  Report Type: Spontaneous
  Country: US (occurrence: US)
  Receive Date: 20200207
  Receipt Date: 20200207
  Transmission Date: 20200409
  Serious: Yes (Hospitalization)
  Sender: FDA-Public Use
  Company Number: None

PATIENT
  Age: 62 Year
  Sex: Male

DRUGS (13)
  1. VIRT-PHOS [Concomitant]
  2. MELOXICAM. [Concomitant]
     Active Substance: MELOXICAM
  3. ANTACID [Concomitant]
     Active Substance: ALUMINUM HYDROXIDE\CALCIUM CARBONATE\DIMETHICONE\MAGNESIUM HYDROXIDE
  4. GABAPENTION [Concomitant]
  5. PREGABALIN. [Concomitant]
     Active Substance: PREGABALIN
  6. MONTELUKAST [Concomitant]
     Active Substance: MONTELUKAST SODIUM
  7. ATENOLOL. [Concomitant]
     Active Substance: ATENOLOL
  8. PREDNISONE. [Concomitant]
     Active Substance: PREDNISONE
  9. ZYTIGA [Suspect]
     Active Substance: ABIRATERONE ACETATE
     Indication: PROSTATE CANCER
     Route: 048
     Dates: start: 20200102
  10. ALLOPURINOL. [Concomitant]
     Active Substance: ALLOPURINOL
  11. TAMSULOSIN [Concomitant]
     Active Substance: TAMSULOSIN
  12. FLUOXETINE [Concomitant]
     Active Substance: FLUOXETINE HYDROCHLORIDE
  13. HDROCO/APAP [Concomitant]

REACTIONS (2)
  - Adverse drug reaction [None]
  - Hospitalisation [None]
